FAERS Safety Report 8567304 (Version 2)
Quarter: 2013Q3

REPORT INFORMATION
  Report Type: Spontaneous
  Country: FR (occurrence: FR)
  Receive Date: 20120517
  Receipt Date: 20130918
  Transmission Date: 20140515
  Serious: Yes (Hospitalization)
  Sender: FDA-Public Use
  Company Number: FR-GLAXOSMITHKLINE-B0800319A

PATIENT
  Age: 76 Year
  Sex: Female

DRUGS (8)
  1. ARIXTRA [Suspect]
     Indication: EMBOLISM VENOUS
     Dosage: 7.5MG UNKNOWN
     Route: 065
     Dates: end: 20101221
  2. PREVISCAN [Suspect]
     Indication: EMBOLISM VENOUS
     Dosage: 10MG PER DAY
     Route: 048
     Dates: end: 20101221
  3. KARDEGIC [Suspect]
     Indication: EMBOLISM VENOUS
     Dosage: 160MG PER DAY
     Route: 048
  4. ESIDREX [Concomitant]
     Route: 065
  5. SOLUPRED [Concomitant]
     Route: 065
  6. CACIT [Concomitant]
     Route: 065
  7. SPECIAFOLDINE [Concomitant]
     Route: 065
  8. TAHOR [Concomitant]
     Route: 065

REACTIONS (2)
  - Haemorrhagic anaemia [Recovered/Resolved]
  - Muscle haemorrhage [Recovered/Resolved]
